FAERS Safety Report 13046851 (Version 2)
Quarter: 2016Q4

REPORT INFORMATION
  Report Type: Report from Study
  Country: US (occurrence: US)
  Receive Date: 20161220
  Receipt Date: 20161221
  Transmission Date: 20170207
  Serious: Yes (Death, Other)
  Sender: FDA-Public Use
  Company Number: US-JNJFOC-20161216900

PATIENT

DRUGS (2)
  1. DOXORUBICIN HYDROCHLORIDE. [Suspect]
     Active Substance: DOXORUBICIN HYDROCHLORIDE
     Indication: SARCOMA METASTATIC
     Dosage: ON DAY 01
     Route: 042
  2. PALIFOSFAMIDE [Suspect]
     Active Substance: PALIFOSFAMIDE
     Indication: SARCOMA METASTATIC
     Dosage: OVER 30 MINUTES ONCE PER DAY ON DAYS 1??TO 3
     Route: 042

REACTIONS (1)
  - Right ventricular failure [Fatal]
